FAERS Safety Report 5556136-5 (Version None)
Quarter: 2007Q4

REPORT INFORMATION
  Report Type: 
  Country: None (occurrence: None)
  Receive Date: 20071213
  Receipt Date: 20071211
  Transmission Date: 20080405
  Serious: Yes (Death, Other)
  Sender: FDA-Public Use
  Company Number: CA-MERCK-0712CAN00035

PATIENT
  Age: 66 Year
  Sex: Male

DRUGS (5)
  1. COZAAR [Suspect]
     Indication: HYPERTENSION
     Route: 048
     Dates: start: 20051107, end: 20070507
  2. PERINDOPRIL [Concomitant]
     Indication: HYPERTENSION
     Route: 065
     Dates: start: 20051111
  3. VALPROIC ACID [Concomitant]
     Indication: BIPOLAR DISORDER
     Route: 065
     Dates: start: 20021111
  4. LAMOTRIGINE [Concomitant]
     Indication: BIPOLAR DISORDER
     Route: 065
     Dates: start: 20020101
  5. LEVOTHYROXINE SODIUM [Concomitant]
     Indication: HYPOTHYROIDISM
     Route: 065
     Dates: start: 19800101

REACTIONS (2)
  - PENIS CARCINOMA [None]
  - URETHRAL CANCER METASTATIC [None]
